FAERS Safety Report 22338269 (Version 1)
Quarter: 2023Q2

REPORT INFORMATION
  Report Type: Spontaneous
  Country: JP (occurrence: JP)
  Receive Date: 20230518
  Receipt Date: 20230518
  Transmission Date: 20230721
  Serious: Yes (Hospitalization)
  Sender: FDA-Public Use
  Company Number: JP-ROCHE-3351275

PATIENT
  Age: 58 Year
  Sex: Female
  Weight: 58.1 kg

DRUGS (4)
  1. PERJETA [Suspect]
     Active Substance: PERTUZUMAB
     Indication: Breast cancer
     Dosage: 840 MILLIGRAM, SINGLE
     Route: 041
     Dates: start: 20230126, end: 20230126
  2. TRASTUZUMAB [Suspect]
     Active Substance: TRASTUZUMAB
     Indication: HER2 positive breast cancer
     Dosage: 490 MILLIGRAM, SINGLE
     Route: 041
     Dates: start: 20230126, end: 20230126
  3. DOCETAXEL [Suspect]
     Active Substance: DOCETAXEL
     Indication: HER2 positive breast cancer
     Dosage: 115 MILLIGRAM, SINGLE
     Route: 041
     Dates: start: 20230127, end: 20230127
  4. DECADRON (DEXAMETHASONE SODIUM PHOSPHATE) [Concomitant]
     Active Substance: DEXAMETHASONE SODIUM PHOSPHATE
     Dosage: 6.6 MILLIGRAM, SINGLE
     Route: 065
     Dates: start: 20230127, end: 20230127

REACTIONS (1)
  - Interstitial lung disease [Recovered/Resolved]

NARRATIVE: CASE EVENT DATE: 20230127
